FAERS Safety Report 6206229-4 (Version None)
Quarter: 2009Q2

REPORT INFORMATION
  Report Type: 
  Country: None (occurrence: None)
  Receive Date: 20090528
  Receipt Date: 20090519
  Transmission Date: 20091009
  Serious: Yes (Hospitalization)
  Sender: FDA-Public Use
  Company Number: FR-ABBOTT-09P-056-0569534-00

PATIENT
  Sex: Female

DRUGS (1)
  1. MICROPAKINE GRANULE [Suspect]
     Indication: EPILEPSY
     Dosage: 1000 MG
     Dates: start: 20090414, end: 20090414

REACTIONS (4)
  - ACCIDENTAL OVERDOSE [None]
  - ALTERED STATE OF CONSCIOUSNESS [None]
  - DRUG DISPENSING ERROR [None]
  - VOMITING [None]
